FAERS Safety Report 25741451 (Version 1)
Quarter: 2025Q3

REPORT INFORMATION
  Report Type: Spontaneous
  Country: CN (occurrence: CN)
  Receive Date: 20250829
  Receipt Date: 20250829
  Transmission Date: 20251020
  Serious: Yes (Hospitalization)
  Sender: BAYER HEALTHCARE PHARMACEUTICALS INC.
  Company Number: CN-BAYER-2025A113917

PATIENT
  Age: 58 Year
  Sex: Male
  Weight: 52 kg

DRUGS (2)
  1. GLUCOBAY [Suspect]
     Active Substance: ACARBOSE
     Indication: Type 2 diabetes mellitus
     Dosage: 50 MG, TID
     Route: 048
     Dates: start: 20250410, end: 202505
  2. INSULIN DEGLUDEC\LIRAGLUTIDE [Suspect]
     Active Substance: INSULIN DEGLUDEC\LIRAGLUTIDE
     Indication: Type 2 diabetes mellitus
     Dosage: 16 IU, QD
     Route: 058
     Dates: start: 20250410, end: 202505

REACTIONS (3)
  - Weight decreased [Recovering/Resolving]
  - Abdominal discomfort [Recovered/Resolved]
  - Blood glucose increased [None]

NARRATIVE: CASE EVENT DATE: 20250101
